FAERS Safety Report 9307679 (Version 1)
Quarter: 2013Q2

REPORT INFORMATION
  Report Type: Other
  Country: DE (occurrence: DE)
  Receive Date: 20130524
  Receipt Date: 20130524
  Transmission Date: 20140414
  Serious: Yes (Other)
  Sender: FDA-Public Use
  Company Number: DE-GLENMARK GENERICS INC.-2013GMK005750

PATIENT
  Age: 20 Year
  Sex: Female
  Weight: 65 kg

DRUGS (5)
  1. TOPIRAMATE [Suspect]
     Indication: EPILEPSY
     Dosage: 100 MG, QD
     Route: 048
     Dates: start: 20121015, end: 20130305
  2. LAMOTRIGINE [Suspect]
     Indication: EPILEPSY
     Dosage: 400 MG, QD
     Route: 048
     Dates: start: 20121015, end: 20130305
  3. CEFUROXIM                          /00454602/ [Concomitant]
     Indication: BACTERIAL INFECTION
     Dosage: 1500 MG, UNK
     Route: 042
     Dates: start: 20130304, end: 20130305
  4. BUSCOPAN [Concomitant]
     Indication: PAIN
     Dosage: 60 MG, QD
     Route: 042
     Dates: start: 20130304, end: 20130305
  5. FOLIC ACID [Concomitant]
     Indication: PROPHYLAXIS OF NEURAL TUBE DEFECT
     Dosage: 5 MG, QD
     Route: 048
     Dates: start: 20121120, end: 20130305

REACTIONS (3)
  - Abortion late [Recovered/Resolved]
  - Premature rupture of membranes [None]
  - Exposure during pregnancy [None]
